FAERS Safety Report 24978435 (Version 2)
Quarter: 2025Q2

REPORT INFORMATION
  Report Type: Report from Study
  Country: DE (occurrence: DE)
  Receive Date: 20250217
  Receipt Date: 20250415
  Transmission Date: 20250717
  Serious: Yes (Death, Other)
  Sender: ABBVIE
  Company Number: DE-ABBVIE-6128826

PATIENT
  Age: 59 Year
  Sex: Male

DRUGS (1)
  1. RINVOQ [Suspect]
     Active Substance: UPADACITINIB
     Indication: Rheumatoid arthritis
     Route: 048
     Dates: start: 202101, end: 202205

REACTIONS (13)
  - Hepatic failure [Fatal]
  - Subarachnoid haemorrhage [Fatal]
  - Encephalitis [Fatal]
  - Malignant ascites [Fatal]
  - Malignant peritoneal neoplasm [Fatal]
  - Acute kidney injury [Fatal]
  - Small intestine adenocarcinoma [Fatal]
  - Hypophagia [Unknown]
  - Fluid intake reduced [Unknown]
  - Adenocarcinoma pancreas [Fatal]
  - Bile duct adenocarcinoma [Fatal]
  - Cerebral disorder [Unknown]
  - Pleocytosis [Unknown]

NARRATIVE: CASE EVENT DATE: 20210801
